FAERS Safety Report 8428317-4 (Version None)
Quarter: 2012Q2

REPORT INFORMATION
  Report Type: 
  Country: None (occurrence: None)
  Receive Date: 20120611
  Receipt Date: 20120607
  Transmission Date: 20120825
  Serious: Yes (Other)
  Sender: FDA-Public Use
  Company Number: US-AMGEN-USASP2010000386

PATIENT
  Age: 70 Year
  Sex: Female
  Weight: 92.3 kg

DRUGS (13)
  1. NPLATE [Suspect]
  2. GLUCOPHAGE [Concomitant]
     Indication: TYPE 2 DIABETES MELLITUS
     Dosage: 50 MG, QD
     Route: 048
  3. CORTICOSTEROIDS [Concomitant]
     Indication: IDIOPATHIC THROMBOCYTOPENIC PURPURA
     Dosage: UNK
  4. PREDNISONE TAB [Concomitant]
     Indication: IDIOPATHIC THROMBOCYTOPENIC PURPURA
     Dosage: 10 MG, UNK
  5. NPLATE [Suspect]
     Indication: IDIOPATHIC THROMBOCYTOPENIC PURPURA
     Dosage: 85 MUG, QWK
     Route: 058
     Dates: start: 20100504, end: 20100615
  6. NPLATE [Suspect]
  7. LISINOPRIL [Concomitant]
     Indication: HYPERTENSION
     Dosage: 5 MG, QD
     Route: 048
  8. NPLATE [Suspect]
  9. OMEPRAZOLE [Concomitant]
     Indication: GASTROOESOPHAGEAL REFLUX DISEASE
     Dosage: 20 MG, QD
     Route: 048
  10. RESTORIL                           /00393701/ [Concomitant]
     Indication: SLEEP DISORDER
     Dosage: 15 MG, QD
     Route: 048
  11. DANAZOL [Concomitant]
     Indication: IDIOPATHIC THROMBOCYTOPENIC PURPURA
     Dosage: UNK UNK, QOD
     Dates: start: 20091030
  12. PREDNISONE TAB [Concomitant]
     Dosage: 60 MG, QD
  13. LEVOTHROID [Concomitant]
     Indication: HYPOTHYROIDISM
     Dosage: 100 MG, QD
     Route: 048

REACTIONS (5)
  - MYALGIA [None]
  - BONE PAIN [None]
  - ARTHRALGIA [None]
  - THROMBOCYTOPENIA [None]
  - FATIGUE [None]
